FAERS Safety Report 6530716-2 (Version None)
Quarter: 2010Q1

REPORT INFORMATION
  Report Type: 
  Country: None (occurrence: None)
  Receive Date: 20100108
  Receipt Date: 20081210
  Transmission Date: 20100710
  Serious: No
  Sender: FDA-Public Use
  Company Number: A0760030A

PATIENT
  Age: 54 Year
  Sex: Male

DRUGS (3)
  1. LOVAZA [Suspect]
     Indication: SLEEP DISORDER
     Dosage: 1G TWICE PER DAY
     Route: 048
     Dates: start: 20080901
  2. NATURAL MEDICATION [Concomitant]
  3. SPIRULINA [Concomitant]

REACTIONS (2)
  - SKIN DISCOLOURATION [None]
  - THERAPEUTIC RESPONSE UNEXPECTED [None]
